FAERS Safety Report 17211838 (Version 3)
Quarter: 2020Q1

REPORT INFORMATION
  Report Type: Report from Study
  Country: US (occurrence: US)
  Receive Date: 20191230
  Receipt Date: 20200226
  Transmission Date: 20200409
  Serious: Yes (Hospitalization, Other)
  Sender: FDA-Public Use
  Company Number: US-SA-2019SA018714

PATIENT
  Age: 62 Year
  Sex: Male

DRUGS (7)
  1. TYLENOL [Concomitant]
     Active Substance: ACETAMINOPHEN
     Indication: PREMEDICATION
     Dosage: UNK, UNK
     Route: 065
  2. SOLU-MEDROL [Concomitant]
     Active Substance: METHYLPREDNISOLONE SODIUM SUCCINATE
     Indication: PREMEDICATION
     Dosage: 40 MG, BID
     Route: 042
     Dates: start: 20190117
  3. ALEMTUZUMAB [Suspect]
     Active Substance: ALEMTUZUMAB
     Indication: MULTIPLE SCLEROSIS
     Dosage: 12 MG, QD
     Route: 041
     Dates: start: 20190114, end: 20190117
  4. ALEMTUZUMAB [Suspect]
     Active Substance: ALEMTUZUMAB
     Dosage: 12 MG, QD
     Route: 041
     Dates: start: 20190206, end: 20190206
  5. ZYRTEC [Concomitant]
     Active Substance: CETIRIZINE HYDROCHLORIDE
     Indication: PREMEDICATION
     Dosage: UNK UNK, UNK
     Route: 065
  6. BENADRYL [Concomitant]
     Active Substance: DIPHENHYDRAMINE HYDROCHLORIDE
     Indication: PREMEDICATION
     Dosage: 25 MG, QD
     Route: 048
     Dates: start: 20190117
  7. PEPCID [Concomitant]
     Active Substance: FAMOTIDINE
     Indication: PREMEDICATION
     Dosage: 20 MG, QD
     Route: 048
     Dates: start: 20190117

REACTIONS (15)
  - White blood cell count abnormal [Unknown]
  - Unevaluable event [Unknown]
  - Tachycardia [Unknown]
  - Hypertension [Unknown]
  - Chills [Unknown]
  - Infusion related reaction [Unknown]
  - Pyrexia [Recovered/Resolved]
  - Flushing [Unknown]
  - White blood cell count decreased [Unknown]
  - Speech disorder [Unknown]
  - Blood pressure increased [Not Recovered/Not Resolved]
  - Neutropenia [Unknown]
  - Vomiting [Unknown]
  - Nausea [Recovered/Resolved]
  - Unevaluable event [Not Recovered/Not Resolved]

NARRATIVE: CASE EVENT DATE: 2019
